FAERS Safety Report 13836510 (Version 3)
Quarter: 2017Q4

REPORT INFORMATION
  Report Type: Spontaneous
  Country: JP (occurrence: JP)
  Receive Date: 20170804
  Receipt Date: 20171006
  Transmission Date: 20180320
  Serious: Yes (Death)
  Sender: FDA-Public Use
  Company Number: JP-ELI_LILLY_AND_COMPANY-JP201708001353

PATIENT
  Age: 83 Year
  Sex: Male
  Weight: 57 kg

DRUGS (12)
  1. PRASUGREL HYDROCHLORIDE [Suspect]
     Active Substance: PRASUGREL HYDROCHLORIDE
     Indication: CORONARY ARTERIAL STENT INSERTION
  2. ISOSORBIDE DINITRATE ELMED EISAI [Concomitant]
     Indication: ACUTE MYOCARDIAL INFARCTION
     Dosage: 1 DF, DAILY
     Route: 050
     Dates: start: 20160929
  3. PRASUGREL HYDROCHLORIDE [Suspect]
     Active Substance: PRASUGREL HYDROCHLORIDE
     Indication: MYOCARDIAL INFARCTION
     Dosage: 3.75 MG, DAILY
     Route: 048
     Dates: start: 20160331
  4. AMBROXOL                           /00546002/ [Concomitant]
     Indication: PNEUMONIA ASPIRATION
     Dosage: 15 MG, TID
     Route: 048
     Dates: start: 20161117
  5. CRESTOR [Concomitant]
     Active Substance: ROSUVASTATIN CALCIUM
     Indication: DYSLIPIDAEMIA
     Dosage: 2.5 MG, DAILY
     Route: 048
     Dates: start: 20160219
  6. BAYASPIRIN [Suspect]
     Active Substance: ASPIRIN
     Indication: CORONARY ARTERIAL STENT INSERTION
     Dosage: UNK
  7. LANSOPRAZOLE. [Concomitant]
     Active Substance: LANSOPRAZOLE
     Indication: GASTROOESOPHAGEAL REFLUX DISEASE
     Dosage: 15 MG, DAILY
     Route: 048
     Dates: start: 20160923
  8. CARBOCISTEINE [Concomitant]
     Active Substance: CARBOCYSTEINE
     Indication: PNEUMONIA ASPIRATION
     Dosage: 500 MG, TID
     Route: 048
     Dates: start: 20161117
  9. RACOL NF [Concomitant]
     Indication: GASTROSTOMY
     Dosage: 300 MG, BID
     Route: 048
     Dates: start: 20161201
  10. BAYASPIRIN [Suspect]
     Active Substance: ASPIRIN
     Indication: ACUTE MYOCARDIAL INFARCTION
     Dosage: 100 MG, DAILY
     Route: 048
     Dates: start: 20160331
  11. AMLODIPINE                         /00972402/ [Concomitant]
     Active Substance: AMLODIPINE BESYLATE
     Indication: HYPERTENSION
     Dosage: 2.5 MG, DAILY
     Route: 048
     Dates: start: 20160923
  12. ASVERIN                            /00465502/ [Concomitant]
     Indication: PNEUMONIA ASPIRATION
     Dosage: 20 MG, TID
     Route: 048
     Dates: start: 20160923

REACTIONS (4)
  - Pneumonia aspiration [Recovered/Resolved]
  - Haemorrhage [Recovered/Resolved]
  - Decubitus ulcer [Not Recovered/Not Resolved]
  - Death [Fatal]

NARRATIVE: CASE EVENT DATE: 20161125
